FAERS Safety Report 7366425-X (Version None)
Quarter: 2011Q1

REPORT INFORMATION
  Report Type: 
  Country: None (occurrence: None)
  Receive Date: 20110309
  Receipt Date: 20110223
  Transmission Date: 20110831
  Serious: Yes (Other)
  Sender: FDA-Public Use
  Company Number: MPS1-1000443

PATIENT
  Age: 5 Year
  Sex: Male
  Weight: 19 kg

DRUGS (2)
  1. DIPHENHYDRAMINE HCL [Concomitant]
  2. ALDURAZYME [Suspect]
     Indication: MUCOPOLYSACCHARIDOSIS I
     Dosage: 0.58 MG/KG, INTRAVENOUS
     Route: 042
     Dates: start: 20070807

REACTIONS (4)
  - LARYNGEAL OEDEMA [None]
  - DYSPNOEA [None]
  - CYANOSIS [None]
  - INFUSION RELATED REACTION [None]
